FAERS Safety Report 5831762-4 (Version None)
Quarter: 2008Q3

REPORT INFORMATION
  Report Type: 
  Country: None (occurrence: None)
  Receive Date: 20080803
  Receipt Date: 20080725
  Transmission Date: 20090109
  Serious: Yes (Life-Threatening, Hospitalization)
  Sender: FDA-Public Use
  Company Number: PHHY2008CH15143

PATIENT
  Age: 65 Year
  Sex: Male

DRUGS (5)
  1. SANDIMMUNE [Suspect]
     Indication: LIVER TRANSPLANT
     Dosage: 100 MG/DAY
     Dates: start: 20071121, end: 20080704
  2. 3TC [Suspect]
     Indication: HEPATITIS B
     Dosage: 50 MG/DAY
     Dates: start: 20080702
  3. VIREAD [Suspect]
     Indication: HEPATITIS B
     Dosage: 300 MG/DAY
     Dates: start: 20080702
  4. TRUVADA TM [Suspect]
     Dosage: UNK
     Dates: end: 20080702
  5. PREDNISONE [Concomitant]
     Indication: LIVER TRANSPLANT
     Dosage: 5 MG/DAY

REACTIONS (20)
  - ABDOMINAL PAIN [None]
  - ACUTE HEPATIC FAILURE [None]
  - ASTHENIA [None]
  - CARDIOVASCULAR DISORDER [None]
  - COAGULOPATHY [None]
  - CONSTIPATION [None]
  - ENCEPHALOPATHY [None]
  - FATIGUE [None]
  - GENERAL PHYSICAL HEALTH DETERIORATION [None]
  - HAEMODIALYSIS [None]
  - HEADACHE [None]
  - HEPATITIS B [None]
  - HYPOALBUMINAEMIA [None]
  - HYPOGLYCAEMIA [None]
  - METABOLIC ACIDOSIS [None]
  - OCULAR ICTERUS [None]
  - OLIGURIA [None]
  - PANCREATITIS NECROTISING [None]
  - PRURITUS [None]
  - RESPIRATORY FAILURE [None]
